FAERS Safety Report 10714542 (Version 3)
Quarter: 2015Q1

REPORT INFORMATION
  Report Type: Spontaneous
  Country: JP (occurrence: JP)
  Receive Date: 20150115
  Receipt Date: 20150310
  Transmission Date: 20150721
  Serious: Yes (Death, Life-Threatening, Hospitalization)
  Sender: FDA-Public Use
  Company Number: JP-BAYER-2014-129615

PATIENT
  Age: 78 Year
  Sex: Male

DRUGS (5)
  1. ALESION [Concomitant]
     Active Substance: EPINASTINE HYDROCHLORIDE
     Dosage: DAILY DOSE 20 MG
     Route: 048
     Dates: start: 20140728, end: 20140817
  2. ARGAMATE [Concomitant]
     Active Substance: POLYSTYRENE
     Dosage: DAILY DOSE 1 DF
     Route: 048
     Dates: start: 20140804, end: 20140817
  3. NEXAVAR [Suspect]
     Active Substance: SORAFENIB
     Indication: HEPATOCELLULAR CARCINOMA
     Dosage: 400 MG, QD
     Route: 048
     Dates: start: 20140217
  4. VIBRAMYCIN [Concomitant]
     Active Substance: DOXYCYCLINE
     Dosage: DAILY DOSE 50 MG
     Route: 048
     Dates: end: 20140817
  5. PROTECADIN [Concomitant]
     Active Substance: LAFUTIDINE
     Dosage: DAILY DOSE 10 MG
     Route: 048
     Dates: start: 20140331, end: 20140817

REACTIONS (2)
  - Acute myocardial infarction [Recovering/Resolving]
  - Hepatocellular carcinoma [Fatal]

NARRATIVE: CASE EVENT DATE: 20140817
